APPROVED DRUG PRODUCT: AZOLID
Active Ingredient: PHENYLBUTAZONE
Strength: 100MG
Dosage Form/Route: CAPSULE;ORAL
Application: A087260 | Product #001
Applicant: SANOFI AVENTIS US LLC
Approved: Approved Prior to Jan 1, 1982 | RLD: No | RS: No | Type: DISCN